FAERS Safety Report 16358041 (Version 2)
Quarter: 2019Q2

REPORT INFORMATION
  Report Type: Spontaneous
  Country: CZ (occurrence: CZ)
  Receive Date: 20190527
  Receipt Date: 20190619
  Transmission Date: 20190711
  Serious: Yes (Hospitalization)
  Sender: FDA-Public Use
  Company Number: PHHY2019CZ121191

PATIENT
  Age: 11 Year
  Sex: Male

DRUGS (5)
  1. RISPERA [Concomitant]
     Dosage: 1.5 MG, UNK (0.5-0-1 MG)
     Route: 065
  2. RISPERA [Concomitant]
     Indication: PRODUCT USED FOR UNKNOWN INDICATION
     Dosage: 0.5 MG, UNK (0-0-0.5 MG)
     Route: 065
     Dates: end: 200707
  3. FEVARIN [Concomitant]
     Active Substance: FLUVOXAMINE MALEATE
     Indication: PRODUCT USED FOR UNKNOWN INDICATION
     Dosage: 75 MG, UNK (25-0-50 MG)
     Route: 065
     Dates: start: 200804
  4. RITALIN [Suspect]
     Active Substance: METHYLPHENIDATE HYDROCHLORIDE
     Indication: PRODUCT USED FOR UNKNOWN INDICATION
     Dosage: 30 MG, UNK (20-10-0 MG)
     Route: 065
     Dates: start: 200705
  5. RITALIN [Suspect]
     Active Substance: METHYLPHENIDATE HYDROCHLORIDE
     Dosage: UNK
     Route: 065
     Dates: start: 200707

REACTIONS (3)
  - Hallucination [Unknown]
  - Behaviour disorder [Not Recovered/Not Resolved]
  - Condition aggravated [Unknown]

NARRATIVE: CASE EVENT DATE: 200707
